FAERS Safety Report 8431550-9 (Version None)
Quarter: 2012Q2

REPORT INFORMATION
  Report Type: 
  Country: None (occurrence: None)
  Receive Date: 20120607
  Receipt Date: 20120607
  Transmission Date: 20120825
  Serious: Yes (Other)
  Sender: FDA-Public Use
  Company Number: None

PATIENT
  Age: 68 Year
  Sex: Male
  Weight: 104.3273 kg

DRUGS (1)
  1. CRESTOR [Suspect]
     Indication: BLOOD CHOLESTEROL INCREASED
     Dosage: 10 MG 1 PER DAY
     Dates: start: 20120503, end: 20120522

REACTIONS (4)
  - ABDOMINAL PAIN UPPER [None]
  - CHROMATURIA [None]
  - RENAL PAIN [None]
  - MUSCULAR WEAKNESS [None]
